FAERS Safety Report 6715247-9 (Version None)
Quarter: 2010Q2

REPORT INFORMATION
  Report Type: 
  Country: None (occurrence: None)
  Receive Date: 20100507
  Receipt Date: 20100426
  Transmission Date: 20101027
  Serious: Yes (Other)
  Sender: FDA-Public Use
  Company Number: PL-BAYER-201023220GPV

PATIENT
  Age: 51 Year
  Sex: Male

DRUGS (77)
  1. SORAFENIB [Suspect]
     Indication: RENAL CELL CARCINOMA
     Route: 048
     Dates: start: 20080521, end: 20080521
  2. SORAFENIB [Suspect]
     Dosage: TOTAL DAILY DOSE: 800 MG
     Route: 048
     Dates: start: 20080522, end: 20080604
  3. SORAFENIB [Suspect]
     Dosage: TOTAL DAILY DOSE: 800 MG
     Route: 048
     Dates: start: 20080607, end: 20080617
  4. SORAFENIB [Suspect]
     Route: 048
     Dates: start: 20080618, end: 20080618
  5. SORAFENIB [Suspect]
     Dosage: TOTAL DAILY DOSE: 800 MG
     Route: 048
     Dates: start: 20080702, end: 20080714
  6. SORAFENIB [Suspect]
     Route: 048
     Dates: start: 20080812, end: 20080812
  7. SORAFENIB [Suspect]
     Dosage: TOTAL DAILY DOSE: 800 MG
     Route: 048
     Dates: start: 20080715, end: 20080811
  8. SORAFENIB [Suspect]
     Route: 048
     Dates: start: 20080605, end: 20080606
  9. SORAFENIB [Suspect]
     Route: 048
     Dates: start: 20081007, end: 20081007
  10. SORAFENIB [Suspect]
     Route: 048
     Dates: start: 20081007, end: 20081007
  11. SORAFENIB [Suspect]
     Dosage: TOTAL DAILY DOSE: 1200 MG
     Route: 048
     Dates: start: 20080909, end: 20081006
  12. SORAFENIB [Suspect]
     Dosage: TOTAL DAILY DOSE: 400 MG
     Route: 048
     Dates: start: 20090106, end: 20090106
  13. SORAFENIB [Suspect]
     Dosage: TOTAL DAILY DOSE: 800 MG
     Route: 048
     Dates: start: 20090102, end: 20090105
  14. SORAFENIB [Suspect]
     Route: 048
     Dates: start: 20090101, end: 20090101
  15. SORAFENIB [Suspect]
     Dosage: TOTAL DAILY DOSE: 800 MG
     Route: 048
     Dates: start: 20081228, end: 20081231
  16. SORAFENIB [Suspect]
     Route: 048
     Dates: start: 20081216, end: 20081227
  17. SORAFENIB [Suspect]
     Route: 048
     Dates: start: 20081126, end: 20081126
  18. SORAFENIB [Suspect]
     Dosage: TOTAL DAILY DOSE: 1600 MG
     Dates: start: 20081008, end: 20081012
  19. SORAFENIB [Suspect]
     Route: 048
     Dates: start: 20081013, end: 20081013
  20. SORAFENIB [Suspect]
     Route: 048
     Dates: start: 20081024, end: 20081024
  21. SORAFENIB [Suspect]
     Dosage: TOTAL DAILY DOSE: 1200 MG
     Route: 048
     Dates: start: 20081025, end: 20081113
  22. SORAFENIB [Suspect]
     Route: 048
     Dates: start: 20081114, end: 20081114
  23. SORAFENIB [Suspect]
     Route: 048
     Dates: start: 20081121, end: 20081121
  24. SORAFENIB [Suspect]
     Dosage: TOTAL DAILY DOSE: 800 MG
     Route: 048
     Dates: start: 20081122, end: 20081125
  25. SORAFENIB [Suspect]
     Route: 048
     Dates: start: 20080812, end: 20080812
  26. SORAFENIB [Suspect]
     Route: 048
     Dates: start: 20080625, end: 20080701
  27. SORAFENIB [Suspect]
     Dosage: TOTAL DAILY DOSE: 1200 MG
     Route: 048
     Dates: start: 20080813, end: 20080908
  28. ACENOCUMAROL [Concomitant]
     Indication: DEEP VEIN THROMBOSIS
     Route: 048
     Dates: start: 20080330, end: 20080917
  29. DETRALEX [Concomitant]
     Indication: DEEP VEIN THROMBOSIS
     Route: 048
     Dates: start: 20080407
  30. POLPRAZOL [Concomitant]
     Route: 048
     Dates: start: 20080909
  31. DUOMOX [Concomitant]
     Route: 048
     Dates: start: 20080925, end: 20081002
  32. CLARITHROMYCIN [Concomitant]
     Route: 048
     Dates: start: 20080925, end: 20081002
  33. LOPERAMIDE [Concomitant]
     Indication: DIARRHOEA
     Route: 048
     Dates: start: 20081007
  34. IBUPROM [Concomitant]
     Indication: PAIN
     Route: 048
     Dates: start: 20081007
  35. TRANSTEC [Concomitant]
     Indication: PAIN
     Dates: start: 20081017
  36. CLEMASTIN [Concomitant]
     Indication: RASH
     Route: 048
     Dates: start: 20081024, end: 20081105
  37. SODIUM CHLORIDE 0.9% [Concomitant]
     Indication: HYPOTENSION
     Route: 042
     Dates: start: 20081204, end: 20081205
  38. SODIUM CHLORIDE 0.9% [Concomitant]
     Route: 042
     Dates: start: 20090126, end: 20090126
  39. SODIUM CHLORIDE 0.9% [Concomitant]
     Route: 042
     Dates: start: 20090123, end: 20090125
  40. FUROSEMID [Concomitant]
     Indication: HYPERCALCAEMIA
     Route: 042
     Dates: start: 20081204, end: 20081205
  41. FUROSEMID [Concomitant]
     Route: 042
     Dates: start: 20090126, end: 20090126
  42. FUROSEMID [Concomitant]
     Route: 042
     Dates: start: 20090123, end: 20090125
  43. DOLTARD [Concomitant]
     Indication: PAIN
     Route: 048
     Dates: start: 20081204, end: 20090122
  44. MORPHINE SULFATE [Concomitant]
     Indication: PAIN
     Dosage: NEBULIZER
     Route: 050
     Dates: start: 20090123, end: 20090126
  45. MORPHINE SULFATE [Concomitant]
     Route: 058
     Dates: start: 20081204, end: 20081214
  46. MORPHINE SULFATE [Concomitant]
     Route: 058
     Dates: start: 20090123, end: 20090126
  47. OXYGEN [Concomitant]
     Indication: PLEURAL EFFUSION
     Dosage: 4 L/MIN
     Route: 045
     Dates: start: 20081205, end: 20081214
  48. SALBUTAMOL [Concomitant]
     Indication: PLEURAL EFFUSION
     Dosage: NEBULIZER
     Route: 050
     Dates: start: 20081205, end: 20081214
  49. AUGMENTIN '125' [Concomitant]
     Route: 042
     Dates: start: 20081206, end: 20081209
  50. FENTANYL [Concomitant]
     Route: 042
     Dates: start: 20081206, end: 20081206
  51. PROPOFOL [Concomitant]
     Route: 042
     Dates: start: 20081206, end: 20081206
  52. KETAMINE [Concomitant]
     Route: 042
     Dates: start: 20081206, end: 20081206
  53. 1% XYLOCAINE [Concomitant]
     Indication: PREMEDICATION
     Route: 042
     Dates: start: 20081206, end: 20081206
  54. PERFALGAN [Concomitant]
     Route: 042
     Dates: start: 20081206, end: 20081206
  55. LACTULOZA [Concomitant]
     Route: 048
     Dates: start: 20081214
  56. LACTULOZA [Concomitant]
     Route: 048
     Dates: start: 20081209, end: 20081213
  57. BIOTRAXON [Concomitant]
     Indication: PNEUMONIA
     Route: 042
     Dates: start: 20090123, end: 20090127
  58. BIOTRAXON [Concomitant]
     Route: 042
     Dates: start: 20081210, end: 20081214
  59. LAKCID [Concomitant]
     Dosage: CAPSULE
     Route: 048
     Dates: start: 20081210, end: 20081214
  60. ALBUMINAR-20 [Concomitant]
     Indication: HYPOALBUMINAEMIA
     Route: 042
     Dates: start: 20090124, end: 20090124
  61. ALBUMINAR-20 [Concomitant]
     Route: 042
     Dates: start: 20081211, end: 20081213
  62. TIALORID [Concomitant]
     Indication: HYPOALBUMINAEMIA
     Route: 048
     Dates: start: 20081214, end: 20090122
  63. GASEC [Concomitant]
     Route: 048
     Dates: start: 20081215
  64. SEVREDOL [Concomitant]
     Indication: PAIN
     Route: 048
     Dates: start: 20081215, end: 20090122
  65. MST CONT [Concomitant]
     Indication: CHEST PAIN
     Route: 048
     Dates: start: 20090123
  66. CORHYDRON [Concomitant]
     Indication: PLEURAL EFFUSION
     Route: 042
     Dates: start: 20081205, end: 20081212
  67. CORHYDRON [Concomitant]
     Route: 042
     Dates: start: 20090123, end: 20090126
  68. MIACALCIN [Concomitant]
     Indication: HYPERCALCAEMIA
     Route: 058
     Dates: start: 20090123, end: 20090124
  69. MIACALCIN [Concomitant]
     Route: 058
     Dates: start: 20090125, end: 20090125
  70. PAMIFOS [Concomitant]
     Indication: HYPERCALCAEMIA
     Route: 042
     Dates: start: 20090124, end: 20090124
  71. POTASSIUM CHLORIDE [Concomitant]
     Route: 042
     Dates: start: 20090125, end: 20090125
  72. POTASSIUM CHLORIDE [Concomitant]
     Route: 042
     Dates: start: 20090126, end: 20090126
  73. KALDYUM [Concomitant]
     Route: 048
     Dates: start: 20090125, end: 20090126
  74. KALDYUM [Concomitant]
     Route: 048
     Dates: start: 20090123, end: 20090124
  75. POLPRAZOL [Concomitant]
     Route: 048
     Dates: start: 20081204, end: 20081214
  76. MULTIELECTROLYTE FLUID (PWE) [Concomitant]
     Route: 042
     Dates: start: 20081206, end: 20081206
  77. VITAMIN C [Concomitant]
     Route: 042
     Dates: start: 20090123, end: 20090126

REACTIONS (1)
  - DEEP VEIN THROMBOSIS [None]
